FAERS Safety Report 8321505-7 (Version None)
Quarter: 2012Q2

REPORT INFORMATION
  Report Type: 
  Country: None (occurrence: None)
  Receive Date: 20120430
  Receipt Date: 20120430
  Transmission Date: 20120825
  Serious: Yes (Other)
  Sender: FDA-Public Use
  Company Number: None

PATIENT
  Age: 44 Year
  Sex: Female
  Weight: 60.781 kg

DRUGS (1)
  1. DYSPORT [Suspect]
     Indication: SKIN WRINKLING
     Dosage: 90 UNITS
     Route: 030

REACTIONS (5)
  - EYE SWELLING [None]
  - BLEPHAROSPASM [None]
  - INJECTION SITE PAIN [None]
  - REACTION TO PRESERVATIVES [None]
  - WRONG TECHNIQUE IN DRUG USAGE PROCESS [None]
